FAERS Safety Report 4548037-6 (Version None)
Quarter: 2004Q4

REPORT INFORMATION
  Report Type: 
  Country: None (occurrence: None)
  Receive Date: 20041227
  Receipt Date: 20040923
  Transmission Date: 20050328
  Serious: No
  Sender: FDA-Public Use
  Company Number: 04P-163-0274517-00

PATIENT
  Age: 71 Year
  Sex: Female
  Weight: 60.3284 kg

DRUGS (13)
  1. HUMIRA [Suspect]
     Indication: RHEUMATOID ARTHRITIS
     Dosage: 40 MG, 1 IN 2 WK, SUBCUTANEOUS
     Route: 058
     Dates: start: 20040301
  2. WARFARIN SODIUM [Concomitant]
  3. METHOTREXATE [Concomitant]
  4. VALSARTAN [Concomitant]
  5. VERAPAMIL [Concomitant]
  6. FUROSEMIDE [Concomitant]
  7. POTASSIUM CHLORIDE [Concomitant]
  8. CYPROHEPTADINE HYDROCHLORIDE [Concomitant]
  9. MULTIVIT [Concomitant]
  10. MAGNESIUM [Concomitant]
  11. CALCIUM GLUCONATE [Concomitant]
  12. FOLIC ACID [Concomitant]
  13. COQ-10 [Concomitant]

REACTIONS (2)
  - BLISTER [None]
  - VISUAL ACUITY REDUCED [None]
